FAERS Safety Report 25734002 (Version 1)
Quarter: 2025Q3

REPORT INFORMATION
  Report Type: Spontaneous
  Country: US (occurrence: US)
  Receive Date: 20250828
  Receipt Date: 20250828
  Transmission Date: 20251021
  Serious: Yes (Hospitalization)
  Sender: SANDOZ
  Company Number: US-002147023-NVSC2024US182239

PATIENT
  Age: 32 Year
  Sex: Female
  Weight: 65.76 kg

DRUGS (9)
  1. AZITHROMYCIN [Suspect]
     Active Substance: AZITHROMYCIN
     Indication: Mycobacterium avium complex infection
     Route: 048
     Dates: start: 20220217, end: 20240808
  2. LAMPRENE [Suspect]
     Active Substance: CLOFAZIMINE
     Indication: Mycobacterium avium complex infection
     Dosage: 100 MG, QD
     Route: 048
     Dates: start: 20220322
  3. LAMPRENE [Suspect]
     Active Substance: CLOFAZIMINE
     Dosage: 100 MG, QD
     Route: 048
     Dates: start: 20240808
  4. LAMPRENE [Suspect]
     Active Substance: CLOFAZIMINE
     Dosage: 100 MG, QD
     Route: 048
     Dates: start: 20241122
  5. LAMPRENE [Suspect]
     Active Substance: CLOFAZIMINE
     Dosage: 100 MG, QD
     Route: 048
     Dates: start: 20241212
  6. ELIQUIS [Concomitant]
     Active Substance: APIXABAN
     Dosage: 5 MG, BID, RESTARTED HER ELIQUIS ON  SATURDAY
     Route: 048
     Dates: start: 20241123
  7. ELIQUIS [Concomitant]
     Active Substance: APIXABAN
     Indication: Prophylaxis
     Dosage: 5 MG, BID, SELF HELD 22 NOV 2024  EVENING DOSE OF ELIQUIS
     Route: 048
     Dates: start: 20230417, end: 20241122
  8. OMADACYCLINE [Concomitant]
     Active Substance: OMADACYCLINE
     Route: 048
     Dates: start: 20250217, end: 20250327
  9. OMADACYCLINE [Concomitant]
     Active Substance: OMADACYCLINE
     Indication: Mycobacterium avium complex infection
     Route: 048
     Dates: start: 20250131, end: 20250207

REACTIONS (17)
  - Cystic fibrosis [Recovered/Resolved]
  - Concomitant disease aggravated [Recovered/Resolved]
  - Sputum increased [Recovering/Resolving]
  - Gastrointestinal pain [Not Recovered/Not Resolved]
  - Dyspnoea [Recovering/Resolving]
  - Fatigue [Recovering/Resolving]
  - Arthralgia [Not Recovered/Not Resolved]
  - Haemoptysis [Recovered/Resolved]
  - Hepatic pain [Unknown]
  - Arthropod bite [Recovering/Resolving]
  - Arthropod-borne disease [Recovering/Resolving]
  - Brain fog [Recovering/Resolving]
  - Muscle fatigue [Recovering/Resolving]
  - Hepatic enzyme increased [Recovered/Resolved]
  - Hepatic enzyme increased [Recovered/Resolved]
  - Tinnitus [Not Recovered/Not Resolved]
  - Nausea [Unknown]

NARRATIVE: CASE EVENT DATE: 20240808
